FAERS Safety Report 11304465 (Version 1)
Quarter: 2015Q3

REPORT INFORMATION
  Report Type: Spontaneous
  Country: US (occurrence: US)
  Receive Date: 20150723
  Receipt Date: 20150723
  Transmission Date: 20151125
  Serious: No
  Sender: FDA-Public Use
  Company Number: US-JNJFOC-20150417349

PATIENT
  Age: 56 Year
  Sex: Male
  Weight: 81.65 kg

DRUGS (3)
  1. ZYRTEC [Suspect]
     Active Substance: CETIRIZINE HYDROCHLORIDE
     Indication: MULTIPLE ALLERGIES
     Route: 048
     Dates: start: 20150419
  2. NASAL SPRAY (NOS) [Concomitant]
     Indication: SINUS OPERATION
     Dosage: DOSAGE: 1-2 SQ/LEFT S/1 QD; INTERVAL: 1 1/2 YEARS
     Route: 065
     Dates: start: 201307
  3. ZYRTEC [Suspect]
     Active Substance: CETIRIZINE HYDROCHLORIDE
     Route: 048

REACTIONS (6)
  - Respiratory tract congestion [Not Recovered/Not Resolved]
  - Headache [Recovering/Resolving]
  - Somnolence [Recovering/Resolving]
  - Nasal disorder [Unknown]
  - Head discomfort [Recovering/Resolving]
  - Drug effect incomplete [Unknown]

NARRATIVE: CASE EVENT DATE: 20150419
